FAERS Safety Report 15465375 (Version 1)
Quarter: 2018Q4

REPORT INFORMATION
  Report Type: Spontaneous
  Country: US (occurrence: US)
  Receive Date: 20181004
  Receipt Date: 20181004
  Transmission Date: 20190204
  Serious: No
  Sender: FDA-Public Use
  Company Number: US-SA-2018SA272863

PATIENT

DRUGS (1)
  1. XYZAL ALLERGY 24HR [Suspect]
     Active Substance: LEVOCETIRIZINE DIHYDROCHLORIDE
     Dosage: UNK UNK, UNK
     Route: 065

REACTIONS (8)
  - Night sweats [Unknown]
  - Nausea [Unknown]
  - Insomnia [Unknown]
  - Impaired work ability [Unknown]
  - Lethargy [Unknown]
  - Oropharyngeal pain [Unknown]
  - Headache [Unknown]
  - Freezing phenomenon [Unknown]
